FAERS Safety Report 11489534 (Version 1)
Quarter: 2015Q3

REPORT INFORMATION
  Report Type: Spontaneous
  Country: US (occurrence: US)
  Receive Date: 20150910
  Receipt Date: 20150910
  Transmission Date: 20151125
  Serious: Yes (Other)
  Sender: FDA-Public Use
  Company Number: US-ROCHE-1454407

PATIENT
  Sex: Female

DRUGS (3)
  1. RIBASPHERE [Suspect]
     Active Substance: RIBAVIRIN
     Indication: CHRONIC HEPATITIS C
     Dosage: DIVIDED DOSES, KADMON PHARMACEUTICALS BRAND
     Route: 048
     Dates: start: 20140814
  2. PEGASYS [Suspect]
     Active Substance: PEGINTERFERON ALFA-2A
     Indication: CHRONIC HEPATITIS C
     Route: 058
     Dates: start: 20140814
  3. SOVALDI [Suspect]
     Active Substance: SOFOSBUVIR
     Indication: CHRONIC HEPATITIS C
     Route: 065
     Dates: start: 20140814

REACTIONS (6)
  - Pruritus [Not Recovered/Not Resolved]
  - Pain [Unknown]
  - Insomnia [Unknown]
  - Headache [Unknown]
  - Rash erythematous [Not Recovered/Not Resolved]
  - Dizziness [Unknown]
